FAERS Safety Report 10048736 (Version 1)
Quarter: 2014Q1

REPORT INFORMATION
  Report Type: Spontaneous
  Country: IN (occurrence: IN)
  Receive Date: 20140331
  Receipt Date: 20140331
  Transmission Date: 20141002
  Serious: Yes (Life-Threatening, Hospitalization)
  Sender: FDA-Public Use
  Company Number: IN-ACTAVIS-2014-05742

PATIENT
  Age: 62 Year
  Sex: Male

DRUGS (2)
  1. DICLOFENAC (UNKNOWN) [Suspect]
     Indication: TOOTHACHE
     Dosage: UNK
     Route: 048
  2. EPINEPHRINE [Suspect]
     Indication: ANAPHYLACTIC REACTION
     Dosage: 1 MG, SINGLE (1:1000)
     Route: 030

REACTIONS (3)
  - Acute myocardial infarction [Recovered/Resolved]
  - Kounis syndrome [Recovered/Resolved]
  - Anaphylactic reaction [Recovered/Resolved]
